FAERS Safety Report 5458153-2 (Version None)
Quarter: 2007Q3

REPORT INFORMATION
  Report Type: 
  Country: None (occurrence: None)
  Receive Date: 20070917
  Receipt Date: 20070907
  Transmission Date: 20080115
  Serious: Yes (Hospitalization, Other)
  Sender: FDA-Public Use
  Company Number: 2007SP018058

PATIENT
  Age: 75 Year
  Sex: Female

DRUGS (3)
  1. ELOVENT TWISTHALER (MOMETASONE FUROATE) [Suspect]
     Indication: ASTHMA
     Dosage: 200 MCG; BID; INH
     Route: 055
     Dates: start: 20070408, end: 20070821
  2. TIOTROPIO BROMURE [Concomitant]
  3. DEFLAZACORT [Concomitant]

REACTIONS (2)
  - ACUTE MYOCARDIAL INFARCTION [None]
  - PULMONARY EMBOLISM [None]
